FAERS Safety Report 9637547 (Version 4)
Quarter: 2014Q2

REPORT INFORMATION
  Report Type: Spontaneous
  Country: US (occurrence: US)
  Receive Date: 20131022
  Receipt Date: 20140625
  Transmission Date: 20141212
  Serious: Yes (Hospitalization)
  Sender: FDA-Public Use
  Company Number: US-BAYER-2013-127927

PATIENT
  Age: 31 Year
  Sex: Female
  Weight: 122.45 kg

DRUGS (5)
  1. MIRENA [Suspect]
     Indication: CONTRACEPTION
     Dosage: 20 MCG/24HR, CONT
     Route: 015
     Dates: start: 20110408, end: 20121018
  2. PREDNISONE [Concomitant]
     Indication: ASTHMA
     Dosage: UNK
     Dates: start: 2010, end: 2013
  3. DIFLUCAN [Concomitant]
  4. SPRINTEC [Concomitant]
  5. VENTOLIN [Concomitant]

REACTIONS (9)
  - Uterine perforation [None]
  - Large intestine perforation [Unknown]
  - Injury [None]
  - Pain [None]
  - Medical device complication [None]
  - Emotional distress [None]
  - Depression [None]
  - Anxiety [None]
  - Device issue [None]
